FAERS Safety Report 8396264-2 (Version None)
Quarter: 2012Q2

REPORT INFORMATION
  Report Type: 
  Country: None (occurrence: None)
  Receive Date: 20120530
  Receipt Date: 20120522
  Transmission Date: 20120825
  Serious: Yes (Hospitalization)
  Sender: FDA-Public Use
  Company Number: DE-UCBSA-058008

PATIENT
  Sex: Female

DRUGS (10)
  1. OXCARBAZEPINE [Concomitant]
     Dosage: DAILY DOSE: 900
     Route: 048
  2. DILTAHEXAL RET. [Concomitant]
     Dosage: 90 MG (1-0-1/2)
  3. SEROQUEL [Concomitant]
     Dosage: FOR THE NIGHT
  4. BRONCHORETARD [Concomitant]
     Dosage: 200-0-350 MG
  5. VIMPAT [Suspect]
     Route: 048
  6. PROCORALAN [Concomitant]
  7. ASTHMA SPRAY [Concomitant]
  8. PREDNISOLONE [Concomitant]
     Dosage: 10 MG
  9. CLOPIDOGREL [Concomitant]
     Dosage: 75
  10. LEVOTHYROXINE SODIUM [Concomitant]
     Dosage: 50 MICRO G

REACTIONS (2)
  - UNEVALUABLE EVENT [None]
  - PYREXIA [None]
